FAERS Safety Report 10288868 (Version 1)
Quarter: 2014Q3

REPORT INFORMATION
  Report Type: Spontaneous
  Country: US (occurrence: US)
  Receive Date: 20140709
  Receipt Date: 20140709
  Transmission Date: 20150326
  Serious: No
  Sender: FDA-Public Use
  Company Number: US-GILEAD-2014-0107809

PATIENT
  Sex: Female

DRUGS (9)
  1. VYVANSE [Concomitant]
     Active Substance: LISDEXAMFETAMINE DIMESYLATE
  2. RIBASPHERE RIBAPAK [Suspect]
     Active Substance: RIBAVIRIN
     Indication: HEPATITIS C
     Dosage: 400 MG, BID
     Route: 065
     Dates: start: 20140610
  3. CLONIDINE. [Concomitant]
     Active Substance: CLONIDINE
  4. IBUPROFEN. [Concomitant]
     Active Substance: IBUPROFEN
  5. SOVALDI [Suspect]
     Active Substance: SOFOSBUVIR
     Indication: HEPATITIS C
     Dosage: 400 MG, QD
     Route: 065
     Dates: start: 20140610
  6. ACYCLOVIR                          /00587301/ [Concomitant]
     Active Substance: ACYCLOVIR
  7. NORTRIPTYLINE [Concomitant]
     Active Substance: NORTRIPTYLINE
  8. LORATADINE. [Concomitant]
     Active Substance: LORATADINE
  9. RISPERDAL [Concomitant]
     Active Substance: RISPERIDONE

REACTIONS (5)
  - Dysgeusia [Unknown]
  - Anxiety [Unknown]
  - Vitreous floaters [Unknown]
  - Faeces discoloured [Unknown]
  - Agitation [Unknown]
